FAERS Safety Report 23523657 (Version 2)
Quarter: 2024Q1

REPORT INFORMATION
  Report Type: Spontaneous
  Country: CA (occurrence: CA)
  Receive Date: 20240214
  Receipt Date: 20240220
  Transmission Date: 20240409
  Serious: Yes (Death, Hospitalization, Other)
  Sender: FDA-Public Use
  Company Number: CA-KARYOPHARM-2024KPT000464

PATIENT

DRUGS (5)
  1. XPOVIO [Suspect]
     Active Substance: SELINEXOR
     Indication: Plasma cell myeloma
     Dosage: 60 MG
     Route: 048
     Dates: start: 20230907
  2. XPOVIO [Suspect]
     Active Substance: SELINEXOR
     Dosage: 80 MG, WEEKLY
     Route: 048
  3. XPOVIO [Suspect]
     Active Substance: SELINEXOR
     Dosage: 60 MG ONCE A WEEK ON DAY 1, 8, 15, AND 22 EACH 28 DAY CYCLE
     Route: 065
     Dates: start: 202310
  4. DEXAMETHASONE [Concomitant]
     Active Substance: DEXAMETHASONE
  5. CARFILZOMIB [Concomitant]
     Active Substance: CARFILZOMIB

REACTIONS (4)
  - Shock [Fatal]
  - Lymph node haemorrhage [Fatal]
  - Intra-abdominal haemorrhage [Fatal]
  - Drug effect less than expected [Unknown]
